FAERS Safety Report 4554790-8 (Version None)
Quarter: 2005Q1

REPORT INFORMATION
  Report Type: 
  Country: None (occurrence: None)
  Receive Date: 20050118
  Receipt Date: 20050111
  Transmission Date: 20050727
  Serious: Yes (Death, Hospitalization)
  Sender: FDA-Public Use
  Company Number: US-JNJFOC-20041200595

PATIENT
  Sex: Male
  Weight: 65.77 kg

DRUGS (6)
  1. DURAGESIC [Suspect]
     Route: 062
     Dates: start: 20020101
  2. DURAGESIC [Suspect]
     Indication: PAIN
     Route: 062
     Dates: start: 20020101
  3. NEURONTIN [Concomitant]
     Indication: DRUG USE FOR UNKNOWN INDICATION
     Route: 049
  4. COREG [Concomitant]
     Indication: DRUG USE FOR UNKNOWN INDICATION
     Route: 049
  5. PERCOCET [Concomitant]
     Route: 049
  6. PERCOCET [Concomitant]
     Indication: PAIN
     Route: 049

REACTIONS (15)
  - AGITATION [None]
  - ASTHENIA [None]
  - BEDRIDDEN [None]
  - BRAIN STEM INFARCTION [None]
  - CEREBRAL INFARCTION [None]
  - CONFUSIONAL STATE [None]
  - DIZZINESS [None]
  - FALL [None]
  - GAIT DISTURBANCE [None]
  - GENERAL PHYSICAL HEALTH DETERIORATION [None]
  - HEAD INJURY [None]
  - HYPONATRAEMIA [None]
  - MEDICATION ERROR [None]
  - MENTAL STATUS CHANGES [None]
  - VASCULAR DEMENTIA [None]
